FAERS Safety Report 22626014 (Version 1)
Quarter: 2023Q2

REPORT INFORMATION
  Report Type: Spontaneous
  Country: US (occurrence: US)
  Receive Date: 20230621
  Receipt Date: 20230621
  Transmission Date: 20230722
  Serious: No
  Sender: FDA-Public Use
  Company Number: US-PFIZER INC-PV202300108732

PATIENT
  Age: 22 Year
  Sex: Male

DRUGS (2)
  1. BENEFIX [Suspect]
     Active Substance: COAGULATION FACTOR IX RECOMBINANT HUMAN\ISOPROPYL ALCOHOL
     Indication: Haemorrhage
     Dosage: 4000 IU, 1X/DAY, (4000 UNITSIV EVERY 12-24 HOURS AS NEEDED FOR MINOR BLEEDS; 8000UNITS IV EVERY 24 H
     Route: 042
  2. BENEFIX [Suspect]
     Active Substance: COAGULATION FACTOR IX RECOMBINANT HUMAN\ISOPROPYL ALCOHOL
     Dosage: 8000 IU, 1X/DAY (4000 UNITS IV EVERY 12-24 HOURS AS NEEDED FOR MINOR BLEEDS; 8000UNITS IV EVERY 24 H
     Route: 042

REACTIONS (1)
  - Expired product administered [Unknown]
